FAERS Safety Report 5097121-X (Version None)
Quarter: 2006Q3

REPORT INFORMATION
  Report Type: 
  Country: None (occurrence: None)
  Receive Date: 20060906
  Receipt Date: 20060628
  Transmission Date: 20061208
  Serious: Yes (Death, Hospitalization)
  Sender: FDA-Public Use
  Company Number: HQWYE468629JUN06

PATIENT
  Age: 61 Year
  Sex: Female

DRUGS (2)
  1. ENBREL [Suspect]
     Indication: RHEUMATOID ARTHRITIS
     Route: 058
  2. METHOTREXATE [Suspect]
     Indication: RHEUMATOID ARTHRITIS
     Dosage: 25 MG, UNSPECIFIED FREQUENCY
     Dates: start: 19990101

REACTIONS (6)
  - ARRHYTHMIA [None]
  - CONDITION AGGRAVATED [None]
  - HYPOXIA [None]
  - METABOLIC ACIDOSIS [None]
  - RENAL FAILURE [None]
  - RHEUMATOID LUNG [None]
